FAERS Safety Report 10879148 (Version 3)
Quarter: 2015Q2

REPORT INFORMATION
  Report Type: Spontaneous
  Country: US (occurrence: US)
  Receive Date: 20150302
  Receipt Date: 20150507
  Transmission Date: 20150821
  Serious: Yes (Other)
  Sender: FDA-Public Use
  Company Number: US-BAYER-2015-030598

PATIENT
  Age: 32 Year
  Sex: Female
  Weight: 63.95 kg

DRUGS (1)
  1. SKYLA [Suspect]
     Active Substance: LEVONORGESTREL
     Indication: CONTRACEPTION
     Dosage: 14 MCG/24HR, CONT
     Route: 015
     Dates: start: 20140529, end: 20150218

REACTIONS (5)
  - Abortion spontaneous [None]
  - Progesterone decreased [None]
  - Drug ineffective [None]
  - Pregnancy with contraceptive device [None]
  - Human chorionic gonadotropin decreased [None]

NARRATIVE: CASE EVENT DATE: 201502
